FAERS Safety Report 8447840-X (Version None)
Quarter: 2012Q2

REPORT INFORMATION
  Report Type: 
  Country: None (occurrence: None)
  Receive Date: 20120619
  Receipt Date: 20120611
  Transmission Date: 20120825
  Serious: Yes (Other)
  Sender: FDA-Public Use
  Company Number: US-BAYER-2012-018245

PATIENT
  Age: 46 Year
  Sex: Female

DRUGS (2)
  1. YASMIN [Suspect]
     Dosage: UNK
     Dates: start: 20020628, end: 20030119
  2. GENTAMICIN [Concomitant]

REACTIONS (1)
  - DEEP VEIN THROMBOSIS [None]
